FAERS Safety Report 8472648-9 (Version None)
Quarter: 2012Q2

REPORT INFORMATION
  Report Type: 
  Country: None (occurrence: None)
  Receive Date: 20120627
  Receipt Date: 20120425
  Transmission Date: 20120825
  Serious: No
  Sender: FDA-Public Use
  Company Number: US-AMGEN-USASP2012026416

PATIENT
  Age: 55 Year
  Sex: Female

DRUGS (15)
  1. FOLIC ACID [Concomitant]
     Indication: ANAEMIA
     Dosage: 1 MG, UNK
  2. LASIX [Concomitant]
     Indication: ABDOMINAL DISTENSION
     Dosage: 20 MG, QD
     Route: 048
     Dates: start: 20120312
  3. PROCRIT [Suspect]
     Indication: ANAEMIA
     Dosage: UNK
     Route: 058
     Dates: start: 20120402, end: 20120409
  4. CORGARD [Concomitant]
     Dosage: 200 MG, UNK
  5. PROTONIX [Concomitant]
     Indication: GASTROOESOPHAGEAL REFLUX DISEASE
     Dosage: 40 MG, QD
     Route: 048
  6. ULTRAM [Concomitant]
     Dosage: 50 MG, UNK
     Route: 048
  7. SANTYL [Concomitant]
  8. XIFAXAN [Concomitant]
     Dosage: 550 MG, UNK
  9. IRON [Concomitant]
     Indication: ANAEMIA
     Dosage: UNK
     Route: 048
     Dates: start: 20120402
  10. VITAMIN B6 [Concomitant]
     Indication: ANAEMIA
     Dosage: 100 MG, UNK
     Route: 048
  11. FLORASTOR [Concomitant]
     Indication: PROBIOTIC THERAPY
     Dosage: 250 MG, UNK
     Dates: start: 20111001
  12. PHENERGAN [Concomitant]
     Dosage: 25 MG, UNK
     Route: 048
  13. PANCRELIPASE [Concomitant]
     Dosage: 5000 IU, UNK
  14. ARANESP [Suspect]
     Indication: ANAEMIA
     Dosage: UNK
     Dates: start: 20120416
  15. ALDACTONE [Concomitant]
     Indication: ABDOMINAL DISTENSION
     Dosage: 50 MG, QD
     Route: 048
     Dates: start: 20120312

REACTIONS (11)
  - HYPOKINESIA [None]
  - HAEMORRHAGE [None]
  - COUGH [None]
  - PRURITUS [None]
  - LACERATION [None]
  - JOINT RANGE OF MOTION DECREASED [None]
  - ANGIOPATHY [None]
  - OEDEMA PERIPHERAL [None]
  - PAIN IN EXTREMITY [None]
  - HAEMOGLOBIN DECREASED [None]
  - INSOMNIA [None]
